FAERS Safety Report 4341179-X (Version None)
Quarter: 2004Q2

REPORT INFORMATION
  Report Type: 
  Country: None (occurrence: None)
  Receive Date: 20040419
  Receipt Date: 20040413
  Transmission Date: 20050107
  Serious: Yes (Death, Other)
  Sender: FDA-Public Use
  Company Number: US-BRISTOL-MYERS SQUIBB COMPANY-12559431

PATIENT
  Age: 58 Year
  Sex: Female

DRUGS (8)
  1. VP-16 [Suspect]
     Indication: NON-HODGKIN'S LYMPHOMA
     Dates: start: 19820301
  2. CYCLOPHOSPHAMIDE [Suspect]
     Indication: NON-HODGKIN'S LYMPHOMA
     Dates: start: 19820301
  3. DOXORUBICIN HCL [Suspect]
     Indication: NON-HODGKIN'S LYMPHOMA
     Dates: start: 19820301
  4. METHOTREXATE [Suspect]
     Indication: NON-HODGKIN'S LYMPHOMA
     Dates: start: 19820301
  5. PREDNISONE [Suspect]
     Indication: NON-HODGKIN'S LYMPHOMA
     Dates: start: 19820301
  6. NITROGEN MUSTARD [Suspect]
     Indication: NON-HODGKIN'S LYMPHOMA
     Dates: start: 19820301
  7. VINCRISTINE [Suspect]
     Indication: NON-HODGKIN'S LYMPHOMA
     Dates: start: 19820301
  8. PROCARBAZINE [Suspect]
     Indication: NON-HODGKIN'S LYMPHOMA
     Dates: start: 19820301

REACTIONS (4)
  - FUNGAL INFECTION [None]
  - PANCYTOPENIA [None]
  - SEPSIS [None]
  - TUMOUR LYSIS SYNDROME [None]
